FAERS Safety Report 15266892 (Version 1)
Quarter: 2018Q4

REPORT INFORMATION
  Report Type: Spontaneous
  Country: NL (occurrence: NL)
  Receive Date: 20180810
  Receipt Date: 20180810
  Transmission Date: 20190204
  Serious: Yes (Other)
  Sender: FDA-Public Use
  Company Number: NL-INDIVIOR LIMITED-INDV-113046-2018

PATIENT
  Age: 48 Year
  Sex: Female

DRUGS (2)
  1. TEMGESIC 0.2 MG TABLET [Suspect]
     Active Substance: BUPRENORPHINE HYDROCHLORIDE
     Indication: PAIN
     Dosage: UNK
     Route: 065
     Dates: start: 2017
  2. ULTRACAIN D-S [Suspect]
     Active Substance: ARTICAINE HYDROCHLORIDE\EPINEPHRINE BITARTRATE
     Indication: HYPOAESTHESIA ORAL
     Dosage: 1 DF, UNK
     Route: 065
     Dates: start: 20180712, end: 20180712

REACTIONS (1)
  - Epilepsy [Recovered/Resolved]

NARRATIVE: CASE EVENT DATE: 20180712
